FAERS Safety Report 20221654 (Version 1)
Quarter: 2021Q4

REPORT INFORMATION
  Report Type: Spontaneous
  Country: US (occurrence: US)
  Receive Date: 20211223
  Receipt Date: 20211223
  Transmission Date: 20220304
  Serious: Yes (Death, Life-Threatening, Hospitalization, Other)
  Sender: FDA-Public Use
  Company Number: US-SUN PHARMACEUTICAL INDUSTRIES LTD-2021R1-321398

PATIENT
  Age: 19 Year
  Sex: Female

DRUGS (2)
  1. BUPROPION [Suspect]
     Active Substance: BUPROPION
     Indication: Product used for unknown indication
     Dosage: 200 TABLETS
     Route: 048
  2. OXCARBAZEPINE [Suspect]
     Active Substance: OXCARBAZEPINE
     Indication: Product used for unknown indication
     Dosage: UNK
     Route: 048

REACTIONS (12)
  - Cardiopulmonary failure [Fatal]
  - Cardiogenic shock [Unknown]
  - Intentional overdose [Unknown]
  - Seizure [Unknown]
  - Unresponsive to stimuli [Unknown]
  - Hypertension [Unknown]
  - Tachycardia [Unknown]
  - Hypothermia [Unknown]
  - Mydriasis [Unknown]
  - Hyperhidrosis [Unknown]
  - Electrocardiogram QT prolonged [Unknown]
  - Bundle branch block left [Unknown]
